FAERS Safety Report 25613079 (Version 4)
Quarter: 2025Q4

REPORT INFORMATION
  Report Type: Report from Study
  Country: US (occurrence: US)
  Receive Date: 20250728
  Receipt Date: 20251006
  Transmission Date: 20260118
  Serious: Yes (Other)
  Sender: ALEXION PHARMACEUTICALS
  Company Number: US-AstraZeneca-CH-00916057A

PATIENT
  Age: 63 Year
  Sex: Female

DRUGS (1)
  1. ULTOMIRIS [Suspect]
     Active Substance: RAVULIZUMAB-CWVZ
     Indication: Atypical haemolytic uraemic syndrome
     Dosage: UNK
     Route: 065

REACTIONS (9)
  - Surgery [Unknown]
  - Loss of consciousness [Unknown]
  - Dizziness [Recovered/Resolved]
  - Fall [Recovering/Resolving]
  - Feeling abnormal [Recovered/Resolved]
  - Tendon rupture [Not Recovered/Not Resolved]
  - Fatigue [Unknown]
  - Joint injury [Recovering/Resolving]
  - Treatment delayed [Unknown]

NARRATIVE: CASE EVENT DATE: 20250701
